FAERS Safety Report 7141061-9 (Version None)
Quarter: 2010Q4

REPORT INFORMATION
  Report Type: 
  Country: None (occurrence: None)
  Receive Date: 20101201
  Receipt Date: 20101201
  Transmission Date: 20110411
  Serious: Yes (Hospitalization)
  Sender: FDA-Public Use
  Company Number: None

PATIENT
  Sex: Female
  Weight: 92.5 kg

DRUGS (3)
  1. HERCEPTIN [Suspect]
     Dosage: 2725 MG
     Dates: end: 20101105
  2. CARBOPLATIN [Suspect]
     Dosage: 2231 MG
     Dates: end: 20100820
  3. TAXOTERE [Suspect]
     Dosage: 440 MG

REACTIONS (2)
  - BLOOD PRESSURE INCREASED [None]
  - DIZZINESS [None]
